FAERS Safety Report 16438695 (Version 3)
Quarter: 2022Q1

REPORT INFORMATION
  Report Type: Report from Study
  Country: CA (occurrence: CA)
  Receive Date: 20190617
  Receipt Date: 20220216
  Transmission Date: 20220424
  Serious: Yes (Other)
  Sender: FDA-Public Use
  Company Number: CA-ABBVIE-19K-028-2819738-00

PATIENT
  Sex: Male
  Weight: 77.180 kg

DRUGS (2)
  1. HUMIRA [Suspect]
     Active Substance: ADALIMUMAB
     Indication: Crohn^s disease
     Route: 058
     Dates: start: 20160108, end: 20170607
  2. HUMIRA [Suspect]
     Active Substance: ADALIMUMAB
     Route: 058

REACTIONS (8)
  - Intestinal stenosis [Not Recovered/Not Resolved]
  - Intestinal dilatation [Not Recovered/Not Resolved]
  - Intestinal fibrosis [Unknown]
  - Gastrointestinal wall thickening [Not Recovered/Not Resolved]
  - Narrow anterior chamber angle [Unknown]
  - Lymphadenopathy [Not Recovered/Not Resolved]
  - Crohn^s disease [Not Recovered/Not Resolved]
  - Drug ineffective [Unknown]
